FAERS Safety Report 23173879 (Version 1)
Quarter: 2023Q4

REPORT INFORMATION
  Report Type: Spontaneous
  Country: US (occurrence: US)
  Receive Date: 20231111
  Receipt Date: 20231111
  Transmission Date: 20240110
  Serious: Yes (Disabling)
  Sender: FDA-Public Use
  Company Number: US-TEVA-2023-US-2942899

PATIENT
  Age: 63 Year
  Sex: Female

DRUGS (6)
  1. PROAIR HFA [Suspect]
     Active Substance: ALBUTEROL SULFATE
     Indication: Chronic obstructive pulmonary disease
     Dosage: 90 MCG/DOSE
     Route: 065
  2. PROAIR HFA [Suspect]
     Active Substance: ALBUTEROL SULFATE
  3. PROAIR HFA [Suspect]
     Active Substance: ALBUTEROL SULFATE
  4. PROAIR DIGIHALER [Suspect]
     Active Substance: ALBUTEROL SULFATE
     Indication: Chronic obstructive pulmonary disease
     Dosage: 90 MCG/DOSE
     Route: 065
  5. PROAIR DIGIHALER [Suspect]
     Active Substance: ALBUTEROL SULFATE
  6. PROAIR DIGIHALER [Suspect]
     Active Substance: ALBUTEROL SULFATE

REACTIONS (6)
  - Physical disability [Unknown]
  - Device delivery system issue [Unknown]
  - Oral disorder [Unknown]
  - Oral candidiasis [Unknown]
  - Feeling abnormal [Unknown]
  - Product use in unapproved indication [Unknown]
